FAERS Safety Report 6598780-2 (Version None)
Quarter: 2010Q1

REPORT INFORMATION
  Report Type: 
  Country: None (occurrence: None)
  Receive Date: 20100224
  Receipt Date: 20100211
  Transmission Date: 20100710
  Serious: Yes (Other)
  Sender: FDA-Public Use
  Company Number: US-PFIZER INC-2006021457

PATIENT
  Sex: Female

DRUGS (5)
  1. ZOLOFT [Suspect]
     Dosage: 150 MG, 1X/DAY
     Route: 048
     Dates: start: 20010101
  2. GEODON [Suspect]
     Dosage: 60 MG, 1X/DAY
     Route: 048
     Dates: start: 20010101
  3. LITHIUM CARBONATE [Concomitant]
     Route: 065
     Dates: start: 19830101
  4. MELLARIL [Concomitant]
     Route: 065
  5. DALMANE [Concomitant]
     Route: 065

REACTIONS (5)
  - BIPOLAR DISORDER [None]
  - DISABILITY [None]
  - HEADACHE [None]
  - INCONTINENCE [None]
  - MENTAL DISORDER [None]
